FAERS Safety Report 24965911 (Version 1)
Quarter: 2025Q1

REPORT INFORMATION
  Report Type: Spontaneous
  Country: FR (occurrence: FR)
  Receive Date: 20250213
  Receipt Date: 20250213
  Transmission Date: 20250409
  Serious: Yes (Other)
  Sender: MYLAN
  Company Number: None

PATIENT
  Age: 62 Year
  Sex: Male

DRUGS (3)
  1. XANAX [Suspect]
     Active Substance: ALPRAZOLAM
     Indication: Depression
     Route: 048
     Dates: start: 202407, end: 202409
  2. PAROXETINE [Suspect]
     Active Substance: PAROXETINE
     Indication: Depression
     Route: 048
     Dates: start: 202407, end: 202409
  3. LOXAPINE [Suspect]
     Active Substance: LOXAPINE
     Indication: Depression
     Route: 048
     Dates: start: 202407, end: 202409

REACTIONS (1)
  - Anterograde amnesia [Not Recovered/Not Resolved]

NARRATIVE: CASE EVENT DATE: 20240801
